FAERS Safety Report 17029362 (Version 2)
Quarter: 2019Q4

REPORT INFORMATION
  Report Type: Spontaneous
  Country: US (occurrence: US)
  Receive Date: 20191114
  Receipt Date: 20191120
  Transmission Date: 20200122
  Serious: Yes (Other)
  Sender: FDA-Public Use
  Company Number: US-LUPIN PHARMACEUTICALS INC.-2019-06632

PATIENT
  Age: 21 Year
  Sex: Female
  Weight: 58.96 kg

DRUGS (3)
  1. NIKKI [Suspect]
     Active Substance: DROSPIRENONE\ETHINYL ESTRADIOL
     Indication: ACNE
     Dosage: 1 DOSAGE FORM, (3/0.02 MG/MG), QD
     Route: 048
     Dates: start: 20191006
  2. CLARITINE [Concomitant]
     Active Substance: LORATADINE
     Indication: HYPERSENSITIVITY
     Dosage: UNK UNK, QD (ONE DAILY
     Route: 065
  3. SINGULAIR [Concomitant]
     Active Substance: MONTELUKAST SODIUM
     Indication: HYPERSENSITIVITY
     Dosage: UNK UNK, QD (AT NIGHT)
     Route: 065

REACTIONS (4)
  - Headache [Recovered/Resolved]
  - Vomiting [Recovered/Resolved]
  - Nausea [Recovered/Resolved]
  - Chills [Recovered/Resolved]

NARRATIVE: CASE EVENT DATE: 20191006
